FAERS Safety Report 4449007-9 (Version None)
Quarter: 2004Q3

REPORT INFORMATION
  Report Type: 
  Country: None (occurrence: None)
  Receive Date: 20040909
  Receipt Date: 20040820
  Transmission Date: 20050211
  Serious: Yes (Hospitalization, Other)
  Sender: FDA-Public Use
  Company Number: USA040876074

PATIENT
  Age: 68 Year
  Sex: Female

DRUGS (9)
  1. FORTEO [Suspect]
     Indication: OSTEOPOROSIS
     Dates: start: 20030501
  2. OXYGEN [Concomitant]
  3. SEREVENT DISKUS (SALMETEROL XINAFOATE) [Concomitant]
  4. PULMICORT [Concomitant]
  5. UNIPHYL [Concomitant]
  6. HYDROCHLOROTHIAZIDE [Concomitant]
  7. LEVOXYL [Concomitant]
  8. PAXIL [Concomitant]
  9. SINGULAIR (MONTELUKAST) [Concomitant]

REACTIONS (3)
  - DIFFICULTY IN WALKING [None]
  - HIP FRACTURE [None]
  - POST PROCEDURAL PAIN [None]
